FAERS Safety Report 6488698-8 (Version None)
Quarter: 2009Q4

REPORT INFORMATION
  Report Type: 
  Country: None (occurrence: None)
  Receive Date: 20091210
  Receipt Date: 20090911
  Transmission Date: 20100525
  Serious: No
  Sender: FDA-Public Use
  Company Number: US-AMGEN-KDL364161

PATIENT
  Sex: Female

DRUGS (1)
  1. ENBREL [Suspect]
     Indication: AUTOIMMUNE DISORDER
     Dates: start: 20061206

REACTIONS (1)
  - HERPES ZOSTER [None]
